FAERS Safety Report 23249473 (Version 1)
Quarter: 2023Q4

REPORT INFORMATION
  Report Type: Other
  Country: CA (occurrence: CA)
  Receive Date: 20231201
  Receipt Date: 20231201
  Transmission Date: 20240109
  Serious: Yes (Other)
  Sender: FDA-Public Use
  Company Number: CA-GLENMARK PHARMACEUTICALS-2023GMK086607

PATIENT

DRUGS (6)
  1. EZETIMIBE [Suspect]
     Active Substance: EZETIMIBE
     Indication: Arteriosclerosis
     Dosage: UNK
     Route: 058
  2. ROSUVASTATIN [Suspect]
     Active Substance: ROSUVASTATIN
     Indication: Arteriosclerosis
     Dosage: 40 MILLIGRAM
     Route: 058
  3. ROSUVASTATIN CALCIUM [Concomitant]
     Active Substance: ROSUVASTATIN CALCIUM
     Indication: Product used for unknown indication
     Dosage: 1 DOSAGE FORM, 1 EVERY 1 DAYS
     Route: 048
  4. ASPIRIN [Concomitant]
     Active Substance: ASPIRIN
     Indication: Product used for unknown indication
     Dosage: 1 DOSAGE FORM, 1 EVERY 1 DAYS
     Route: 048
  5. BISOPROLOL [Concomitant]
     Active Substance: BISOPROLOL\BISOPROLOL FUMARATE
     Indication: Product used for unknown indication
     Dosage: 0.5 MILLIGRAM, 1 EVERY 1 DAYS
     Route: 048
  6. NITROGLYCERIN [Concomitant]
     Active Substance: NITROGLYCERIN
     Indication: Product used for unknown indication
     Dosage: UNK
     Route: 065

REACTIONS (11)
  - Angina unstable [Unknown]
  - Blood cholesterol increased [Unknown]
  - Blood glucose increased [Unknown]
  - Blood triglycerides increased [Unknown]
  - Coronary artery occlusion [Unknown]
  - Dyslipidaemia [Unknown]
  - Glycosylated haemoglobin increased [Unknown]
  - Total cholesterol/HDL ratio decreased [Unknown]
  - Urine albumin/creatinine ratio increased [Unknown]
  - Blood creatine phosphokinase increased [Unknown]
  - Drug ineffective [Unknown]
